FAERS Safety Report 17496362 (Version 1)
Quarter: 2020Q1

REPORT INFORMATION
  Report Type: Spontaneous
  Country: US (occurrence: US)
  Receive Date: 20200304
  Receipt Date: 20200304
  Transmission Date: 20200409
  Serious: No
  Sender: FDA-Public Use
  Company Number: None

PATIENT
  Age: 16 Year
  Sex: Male
  Weight: 54 kg

DRUGS (5)
  1. MINIPRESS [Concomitant]
     Active Substance: PRAZOSIN HYDROCHLORIDE
  2. DEPAKOTE [Suspect]
     Active Substance: DIVALPROEX SODIUM
  3. CLONIDINE. [Concomitant]
     Active Substance: CLONIDINE
  4. LATUDA [Suspect]
     Active Substance: LURASIDONE HYDROCHLORIDE
     Indication: BIPOLAR DISORDER
     Dosage: ?          QUANTITY:1 TABLET(S);?
     Route: 048
  5. RISPERIDONE. [Suspect]
     Active Substance: RISPERIDONE

REACTIONS (9)
  - Pyrexia [None]
  - Anger [None]
  - Insomnia [None]
  - Agitation [None]
  - Nightmare [None]
  - Abdominal pain upper [None]
  - Aggression [None]
  - Headache [None]
  - Feeding disorder [None]

NARRATIVE: CASE EVENT DATE: 20200227
